FAERS Safety Report 4403699-9 (Version None)
Quarter: 2004Q3

REPORT INFORMATION
  Report Type: 
  Country: None (occurrence: None)
  Receive Date: 20040721
  Receipt Date: 20040714
  Transmission Date: 20050211
  Serious: Yes (Other)
  Sender: FDA-Public Use
  Company Number: PHBS2004JP09447

PATIENT
  Age: 68 Year
  Sex: Female

DRUGS (2)
  1. TEGRETOL [Suspect]
     Indication: TRIGEMINAL NEURALGIA
     Dosage: 120 TO 600 MG/DAY
     Route: 048
  2. ZONISAMIDE [Concomitant]
     Route: 065

REACTIONS (3)
  - DRUG HYPERSENSITIVITY [None]
  - HUMAN HERPES VIRUS 6 SEROLOGY POSITIVE [None]
  - PEMPHIGOID [None]
